FAERS Safety Report 6181549-0 (Version None)
Quarter: 2009Q2

REPORT INFORMATION
  Report Type: 
  Country: None (occurrence: None)
  Receive Date: 20090506
  Receipt Date: 20090504
  Transmission Date: 20091009
  Serious: Yes (Death)
  Sender: FDA-Public Use
  Company Number: US-ASTRAZENECA-2009UW09619

PATIENT
  Age: 85 Year
  Sex: Female

DRUGS (2)
  1. SEROQUEL [Suspect]
     Indication: DEPRESSION
     Dosage: 100 MG TO 300 MG PER DAY
     Route: 048
     Dates: start: 20040101, end: 20050108
  2. SEROQUEL [Suspect]
     Indication: DEMENTIA
     Dosage: 100 MG TO 300 MG PER DAY
     Route: 048
     Dates: start: 20040101, end: 20050108

REACTIONS (2)
  - DEATH [None]
  - DIABETES MELLITUS [None]
